FAERS Safety Report 8516964 (Version 3)
Quarter: 2015Q1

REPORT INFORMATION
  Report Type: Spontaneous
  Country: JP (occurrence: JP)
  Receive Date: 20120417
  Receipt Date: 20150325
  Transmission Date: 20150721
  Serious: Yes (Other)
  Sender: FDA-Public Use
  Company Number: JP-PFIZER INC-2012025187

PATIENT
  Age: 62 Year
  Sex: Female
  Weight: 46 kg

DRUGS (7)
  1. AZUCURENIN S [Concomitant]
     Active Substance: GLUTAMINE
     Dosage: 1.5 G, DAILY
     Dates: end: 20110803
  2. WARFARIN [Interacting]
     Active Substance: WARFARIN
     Dosage: 2 MG, DAILY
     Route: 048
     Dates: start: 20110609
  3. ZYVOX [Interacting]
     Active Substance: LINEZOLID
     Indication: ENDOCARDITIS
  4. LASIX [Concomitant]
     Active Substance: FUROSEMIDE
     Dosage: 20 MG, DAILY
     Dates: start: 20110629, end: 20110708
  5. MUCODYNE [Concomitant]
     Active Substance: CARBOCYSTEINE
     Dosage: 1500 MG, DAILY
     Dates: start: 20110627, end: 20110704
  6. ZYVOX [Suspect]
     Active Substance: LINEZOLID
     Indication: SEPSIS
     Dosage: 600 MG, 2X/DAY
     Route: 041
     Dates: start: 20110629, end: 20110731
  7. WARFARIN [Interacting]
     Active Substance: WARFARIN
     Dosage: 2.5 MG, DAILY
     Route: 048
     Dates: start: 20110621, end: 20110704

REACTIONS (3)
  - International normalised ratio increased [Recovered/Resolved]
  - Drug interaction [Recovered/Resolved]
  - Off label use [Unknown]

NARRATIVE: CASE EVENT DATE: 20110629
